FAERS Safety Report 10301865 (Version 2)
Quarter: 2015Q1

REPORT INFORMATION
  Report Type: Spontaneous
  Country: US (occurrence: US)
  Receive Date: 20140714
  Receipt Date: 20150126
  Transmission Date: 20150720
  Serious: Yes (Hospitalization, Other)
  Sender: FDA-Public Use
  Company Number: US-009507513-1407USA003791

PATIENT
  Sex: Female

DRUGS (2)
  1. NUVARING [Suspect]
     Active Substance: ETHINYL ESTRADIOL\ETONOGESTREL
     Dosage: UNK
     Route: 067
     Dates: start: 201306, end: 20130828
  2. NUVARING [Suspect]
     Active Substance: ETHINYL ESTRADIOL\ETONOGESTREL
     Indication: CONTRACEPTION
     Dosage: UNK
     Route: 067
     Dates: start: 20111001

REACTIONS (7)
  - Lithotripsy [Unknown]
  - Transverse sinus thrombosis [Unknown]
  - Generalised tonic-clonic seizure [Unknown]
  - Peripheral swelling [Unknown]
  - Venous pressure increased [Unknown]
  - Maternal exposure before pregnancy [Unknown]
  - Irritability [Unknown]

NARRATIVE: CASE EVENT DATE: 2013
